FAERS Safety Report 8289415-1 (Version None)
Quarter: 2012Q2

REPORT INFORMATION
  Report Type: 
  Country: None (occurrence: None)
  Receive Date: 20120417
  Receipt Date: 20120406
  Transmission Date: 20120825
  Serious: Yes (Death)
  Sender: FDA-Public Use
  Company Number: US-CELGENEUS-163-21880-12030545

PATIENT
  Sex: Female

DRUGS (3)
  1. PHENERGAN HCL [Concomitant]
  2. REVLIMID [Suspect]
     Indication: MULTIPLE MYELOMA
     Dosage: 7.5 MILLIGRAM
     Route: 048
     Dates: start: 20111101
  3. FENTANYL [Concomitant]
     Route: 062

REACTIONS (1)
  - BREAST CANCER [None]
